FAERS Safety Report 18312440 (Version 2)
Quarter: 2020Q4

REPORT INFORMATION
  Report Type: Spontaneous
  Country: US (occurrence: US)
  Receive Date: 20200925
  Receipt Date: 20201015
  Transmission Date: 20210113
  Serious: No
  Sender: FDA-Public Use
  Company Number: US-ASTRAZENECA-2020SF21228

PATIENT
  Age: 27894 Day
  Sex: Female
  Weight: 70.3 kg

DRUGS (5)
  1. OMEPRAZOLE. [Suspect]
     Active Substance: OMEPRAZOLE
     Indication: GASTROOESOPHAGEAL REFLUX DISEASE
     Dosage: DAILY
     Route: 048
  2. BYDUREON BCISE [Suspect]
     Active Substance: EXENATIDE
     Indication: TYPE 2 DIABETES MELLITUS
     Route: 058
     Dates: start: 20200908
  3. JARDIANCE [Concomitant]
     Active Substance: EMPAGLIFLOZIN
  4. CLARITIN OTC [Concomitant]
     Dosage: DAILY
  5. BABY ASPIRIN [Concomitant]
     Active Substance: ASPIRIN
     Dosage: DAILY

REACTIONS (3)
  - Gastric disorder [Unknown]
  - Drug delivery system issue [Unknown]
  - Injection site pruritus [Recovered/Resolved]

NARRATIVE: CASE EVENT DATE: 20200908
